FAERS Safety Report 11906869 (Version 1)
Quarter: 2016Q1

REPORT INFORMATION
  Report Type: Spontaneous
  Country: GB (occurrence: GB)
  Receive Date: 20160111
  Receipt Date: 20160111
  Transmission Date: 20160526
  Serious: Yes (Death, Other)
  Sender: FDA-Public Use
  Company Number: GB-TEVA-624392ISR

PATIENT
  Age: 74 Year
  Sex: Male

DRUGS (4)
  1. ATRIPLA [Interacting]
     Active Substance: EFAVIRENZ\EMTRICITABINE\TENOFOVIR DISOPROXIL FUMARATE
     Indication: HIV INFECTION
  2. RIBAVIRIN. [Suspect]
     Active Substance: RIBAVIRIN
     Indication: ANTIVIRAL TREATMENT
     Dosage: 1200 MILLIGRAM DAILY;
     Route: 048
     Dates: start: 201407
  3. LEDIPASVIR [Interacting]
     Active Substance: LEDIPASVIR
     Indication: ANTIVIRAL TREATMENT
     Route: 048
     Dates: start: 201407
  4. SOFOSBUVIR [Interacting]
     Active Substance: SOFOSBUVIR
     Indication: ANTIVIRAL TREATMENT
     Route: 048
     Dates: start: 201407

REACTIONS (4)
  - Drug-induced liver injury [Not Recovered/Not Resolved]
  - Pneumonia klebsiella [Unknown]
  - Multiple organ dysfunction syndrome [Fatal]
  - Drug interaction [Unknown]
